FAERS Safety Report 22339661 (Version 1)
Quarter: 2023Q2

REPORT INFORMATION
  Report Type: Report from Study
  Country: US (occurrence: US)
  Receive Date: 20230518
  Receipt Date: 20230518
  Transmission Date: 20230721
  Serious: No
  Sender: FDA-Public Use
  Company Number: US-002147023-NVSC2023US109903

PATIENT
  Sex: Female

DRUGS (4)
  1. FLUOCINONIDE [Suspect]
     Active Substance: FLUOCINONIDE
     Indication: Psoriasis
     Route: 065
  2. CALCIPOTRIENE [Suspect]
     Active Substance: CALCIPOTRIENE
     Indication: Product used for unknown indication
     Dosage: UNK (0.05 % CREAM)
     Route: 065
  3. CALCIPOTRIENE [Suspect]
     Active Substance: CALCIPOTRIENE
     Dosage: UNK (0.05 % OINTMENT)
     Route: 065
  4. ESCITALOPRAM OXALATE [Suspect]
     Active Substance: ESCITALOPRAM OXALATE
     Indication: Psoriasis
     Dosage: UNK
     Route: 065

REACTIONS (11)
  - Stasis dermatitis [Unknown]
  - Seborrhoeic keratosis [Unknown]
  - Eczema [Unknown]
  - Haemangioma of skin [Unknown]
  - Solar lentigo [Unknown]
  - Haemangioma [Unknown]
  - Ephelides [Unknown]
  - Idiopathic guttate hypomelanosis [Unknown]
  - Neoplasm [Unknown]
  - Hepatitis B surface antibody [Unknown]
  - Psoriasis [Unknown]
